FAERS Safety Report 4939471-0 (Version None)
Quarter: 2006Q1

REPORT INFORMATION
  Report Type: 
  Country: None (occurrence: None)
  Receive Date: 20060306
  Receipt Date: 20060227
  Transmission Date: 20060701
  Serious: Yes (Hospitalization)
  Sender: FDA-Public Use
  Company Number: HQWYE050728FEB06

PATIENT
  Age: 41 Year
  Sex: Female

DRUGS (6)
  1. RAPAMUNE [Suspect]
     Indication: PROPHYLAXIS AGAINST TRANSPLANT REJECTION
     Dosage: 10 MG 1X PER 1 DAY ORAL
     Route: 048
     Dates: start: 20060217
  2. MYCOPHENOLATE MOFETIL (MYCOPHENOLATE MOFETIL) [Concomitant]
  3. OMEPRAZOLE [Concomitant]
  4. AMIKACIN [Concomitant]
  5. CEFTAZIDIME SODIUM [Concomitant]
  6. CLONAZEPAM [Concomitant]

REACTIONS (4)
  - DIALYSIS [None]
  - DRUG INEFFECTIVE [None]
  - HAEMATOCRIT DECREASED [None]
  - KIDNEY TRANSPLANT REJECTION [None]
